FAERS Safety Report 13898062 (Version 1)
Quarter: 2017Q3

REPORT INFORMATION
  Report Type: Spontaneous
  Country: US (occurrence: None)
  Receive Date: 20170823
  Receipt Date: 20170823
  Transmission Date: 20171127
  Serious: Yes (Hospitalization)
  Sender: FDA-Public Use
  Company Number: None

PATIENT
  Age: 30 Year
  Sex: Female

DRUGS (12)
  1. AUBAGIO [Concomitant]
     Active Substance: TERIFLUNOMIDE
  2. OXYBUTYNIN [Concomitant]
     Active Substance: OXYBUTYNIN
  3. NITROFURATIN [Concomitant]
  4. CETIRIZ/PSE [Concomitant]
  5. TAMSULOSIN [Concomitant]
     Active Substance: TAMSULOSIN
  6. IBUPROFEN. [Concomitant]
     Active Substance: IBUPROFEN
  7. VANCOMYCIN [Concomitant]
     Active Substance: VANCOMYCIN
  8. AMETHIA [Concomitant]
     Active Substance: ETHINYL ESTRADIOL\LEVONORGESTREL
  9. CYANOCOBALAM 100MCG [Suspect]
     Active Substance: CYANOCOBALAMIN
     Indication: VITAMIN B COMPLEX DEFICIENCY
     Route: 030
     Dates: start: 20170721
  10. LEVOFLOCACN [Concomitant]
  11. FLORANEX [Concomitant]
     Active Substance: LACTOBACILLUS ACIDOPHILUS\LACTOBACILLUS DELBRUECKII SUBSP. BULGARICUS
  12. FLUOXETINE [Concomitant]
     Active Substance: FLUOXETINE HYDROCHLORIDE

REACTIONS (4)
  - Pneumonia [None]
  - Sepsis [None]
  - Nephrolithiasis [None]
  - Clostridium difficile infection [None]

NARRATIVE: CASE EVENT DATE: 20170814
